FAERS Safety Report 12685990 (Version 1)
Quarter: 2016Q3

REPORT INFORMATION
  Report Type: Spontaneous
  Country: US (occurrence: US)
  Receive Date: 20160825
  Receipt Date: 20160825
  Transmission Date: 20161109
  Serious: No
  Sender: FDA-Public Use
  Company Number: US-BEH-2016073020

PATIENT

DRUGS (1)
  1. HUMAN IMMUNOGLOBULIN SC (INN) [Suspect]
     Active Substance: HUMAN IMMUNOGLOBULIN G
     Indication: PRODUCT USE ISSUE
     Route: 065

REACTIONS (1)
  - Hypersensitivity [Unknown]
